FAERS Safety Report 12801018 (Version 2)
Quarter: 2016Q4

REPORT INFORMATION
  Report Type: Spontaneous
  Country: IT (occurrence: IT)
  Receive Date: 20161003
  Receipt Date: 20161028
  Transmission Date: 20170207
  Serious: Yes (Other)
  Sender: FDA-Public Use
  Company Number: IT-BIOGEN-2016BI00298141

PATIENT
  Age: 28 Year
  Sex: Female

DRUGS (1)
  1. PLEGRIDY [Suspect]
     Active Substance: PEGINTERFERON BETA-1A
     Indication: MULTIPLE SCLEROSIS
     Route: 058
     Dates: start: 20150930, end: 20160904

REACTIONS (5)
  - Respiratory tract infection [Recovered/Resolved]
  - Depression [Recovered/Resolved]
  - Leukopenia [Recovered/Resolved]
  - Influenza like illness [Unknown]
  - Neutropenia [Recovered/Resolved]

NARRATIVE: CASE EVENT DATE: 20151030
